FAERS Safety Report 25184251 (Version 2)
Quarter: 2025Q3

REPORT INFORMATION
  Report Type: Report from Study
  Country: US (occurrence: US)
  Receive Date: 20250410
  Receipt Date: 20250923
  Transmission Date: 20251020
  Serious: No
  Sender: SUNOVION
  Company Number: US-SMPA-2025SPA003203AA

PATIENT
  Age: 54 Year
  Sex: Male

DRUGS (4)
  1. ORGOVYX [Suspect]
     Active Substance: RELUGOLIX
     Indication: Prostate cancer
     Route: 048
  2. ORGOVYX [Suspect]
     Active Substance: RELUGOLIX
     Dosage: 120 MG, QD
     Route: 048
     Dates: start: 202501
  3. XTANDI [Concomitant]
     Active Substance: ENZALUTAMIDE
  4. VENLAFAXINE [Concomitant]
     Active Substance: VENLAFAXINE HYDROCHLORIDE

REACTIONS (8)
  - Blood calcium increased [Unknown]
  - Chest pain [Recovered/Resolved]
  - Restlessness [Unknown]
  - Influenza [Unknown]
  - Hot flush [Unknown]
  - Myalgia [Unknown]
  - Blood glucose increased [Unknown]
  - Fatigue [Unknown]
